FAERS Safety Report 4433034-1 (Version None)
Quarter: 2004Q3

REPORT INFORMATION
  Report Type: 
  Country: None (occurrence: None)
  Receive Date: 20040721
  Receipt Date: 20030806
  Transmission Date: 20050211
  Serious: Yes (Life-Threatening, Hospitalization)
  Sender: FDA-Public Use
  Company Number: WAES 0308USA00867

PATIENT
  Sex: Male

DRUGS (1)
  1. VIOXX [Suspect]
     Dosage: PO
     Route: 048
     Dates: start: 20030101

REACTIONS (1)
  - ANAPHYLACTIC REACTION [None]
